FAERS Safety Report 5165429-5 (Version None)
Quarter: 2006Q4

REPORT INFORMATION
  Report Type: 
  Country: None (occurrence: None)
  Receive Date: 20061127
  Receipt Date: 20061114
  Transmission Date: 20070319
  Serious: Yes (Death)
  Sender: FDA-Public Use
  Company Number: TKS #21949

PATIENT
  Age: 12 Year
  Sex: Female

DRUGS (1)
  1. UVADEX [Suspect]
     Indication: CHRONIC GRAFT VERSUS HOST DISEASE
     Dosage: {200 MCG EXTRACORPOREAL
     Route: 050
     Dates: start: 20061009, end: 20061113

REACTIONS (5)
  - ASTHENIA [None]
  - BLOOD TRIGLYCERIDES INCREASED [None]
  - HAEMATOCRIT DECREASED [None]
  - LIVER DISORDER [None]
  - PLATELET COUNT DECREASED [None]
